FAERS Safety Report 7351153-7 (Version None)
Quarter: 2011Q1

REPORT INFORMATION
  Report Type: 
  Country: None (occurrence: None)
  Receive Date: 20110314
  Receipt Date: 20110214
  Transmission Date: 20110831
  Serious: No
  Sender: FDA-Public Use
  Company Number: US-B.I. PHARMACEUTICALS,INC./RIDGEFIELD-2011-BP-00850BP

PATIENT
  Age: 71 Year
  Sex: Male
  Weight: 121.11 kg

DRUGS (1)
  1. PRADAXA [Suspect]
     Dates: end: 20101226

REACTIONS (1)
  - ARTHRALGIA [None]
